FAERS Safety Report 12248335 (Version 1)
Quarter: 2016Q2

REPORT INFORMATION
  Report Type: Spontaneous
  Country: None (occurrence: None)
  Receive Date: 20160407
  Receipt Date: 20160407
  Transmission Date: 20160815
  Serious: No
  Sender: FDA-Public Use
  Company Number: None

PATIENT
  Sex: Female

DRUGS (3)
  1. INSULIN [Suspect]
     Active Substance: INSULIN NOS
  2. METFORMIN [Suspect]
     Active Substance: METFORMIN HYDROCHLORIDE
  3. GLIPIZIDE. [Suspect]
     Active Substance: GLIPIZIDE

REACTIONS (8)
  - Blood glucose increased [None]
  - Hyperphagia [None]
  - Thirst [None]
  - Presyncope [None]
  - Feeling of despair [None]
  - Somnolence [None]
  - Dizziness [None]
  - Tremor [None]
